FAERS Safety Report 18066438 (Version 1)
Quarter: 2020Q3

REPORT INFORMATION
  Report Type: Spontaneous
  Country: GB (occurrence: GB)
  Receive Date: 20200724
  Receipt Date: 20200724
  Transmission Date: 20201103
  Serious: Yes (Life-Threatening)
  Sender: FDA-Public Use
  Company Number: GB-DEXPHARM-20200614

PATIENT
  Age: 22 Year
  Sex: Female
  Weight: 54 kg

DRUGS (13)
  1. DYMISTA [Concomitant]
     Active Substance: AZELASTINE HYDROCHLORIDE\FLUTICASONE PROPIONATE
     Dosage: PUFF
     Dates: start: 20200311
  2. ACCRETE D3 [Concomitant]
     Active Substance: CALCIUM CARBONATE\CHOLECALCIFEROL
     Dates: start: 20190116
  3. NITROFURANTOIN. [Concomitant]
     Active Substance: NITROFURANTOIN
     Dosage: FOR 7 DAYS
     Dates: start: 20200518, end: 20200525
  4. TRIMETHOPRIM. [Concomitant]
     Active Substance: TRIMETHOPRIM
     Indication: PROPHYLAXIS URINARY TRACT INFECTION
     Dosage: AT NIGHT FOR 3 MONTHS
     Dates: start: 20200305
  5. EPIPEN [Concomitant]
     Active Substance: EPINEPHRINE
     Dosage: USE AS DIRECTED
     Dates: start: 20200228
  6. RESOLUTION CHEMICALS HYDVENTIA [Concomitant]
     Dosage: 1 IN THE MORNING, 1 AT MIDDAY AND 1 AT 5 PM
     Dates: start: 20200228
  7. OLOPATADINE. [Concomitant]
     Active Substance: OLOPATADINE
     Dates: start: 20200311
  8. AMITRIPTYLINE HYDROCHLORIDE. [Concomitant]
     Active Substance: AMITRIPTYLINE HYDROCHLORIDE
     Dosage: EVERY NIGHT
     Dates: start: 20200228
  9. OMEPRAZOLE. [Suspect]
     Active Substance: OMEPRAZOLE
     Route: 048
     Dates: start: 20200619
  10. RANITIDINE. [Concomitant]
     Active Substance: RANITIDINE
     Dates: start: 20200211
  11. SALBUTAMOL [Concomitant]
     Active Substance: ALBUTEROL
     Dosage: UP TO FOUR TIMES A DAY
     Route: 055
     Dates: start: 20191007
  12. FEXOFENADINE [Concomitant]
     Active Substance: FEXOFENADINE HYDROCHLORIDE
     Dates: start: 20200311
  13. HYDROCORTISONE. [Concomitant]
     Active Substance: HYDROCORTISONE
     Dosage: (HALF A VIAL)
     Dates: start: 20190312

REACTIONS (1)
  - Swollen tongue [Recovered/Resolved]

NARRATIVE: CASE EVENT DATE: 20200622
